FAERS Safety Report 4668834-6 (Version None)
Quarter: 2005Q2

REPORT INFORMATION
  Report Type: 
  Country: None (occurrence: None)
  Receive Date: 20050523
  Receipt Date: 20050421
  Transmission Date: 20051028
  Serious: Yes (Life-Threatening)
  Sender: FDA-Public Use
  Company Number: JP-BOEHRINGER INGELHEIM PHARMACEUTICALS, INC.-2005-BP-06510NB

PATIENT
  Sex: Female

DRUGS (10)
  1. BI-SIFROL TABLETS [Suspect]
     Indication: PARKINSON'S DISEASE
     Route: 048
     Dates: start: 20050117, end: 20050424
  2. BAYASPIRIN [Concomitant]
     Indication: CEREBRAL INFARCTION
     Route: 048
  3. GASMOTIN [Concomitant]
     Route: 048
     Dates: start: 20050117
  4. GASTER D [Concomitant]
     Route: 048
  5. MADOPAR [Concomitant]
     Indication: PARKINSONISM
     Route: 048
     Dates: start: 20050411
  6. FP [Concomitant]
     Indication: PARKINSONISM
     Route: 048
     Dates: start: 20050411
  7. ALOC [Concomitant]
     Indication: HYPERTENSION
     Route: 048
  8. CARDENALIN [Concomitant]
     Indication: HYPERTENSION
     Route: 048
  9. COMELIAN [Concomitant]
     Indication: CEREBRAL INFARCTION
     Route: 048
  10. MAGNESIUM OXIDE [Concomitant]
     Indication: CONSTIPATION
     Route: 048

REACTIONS (1)
  - SUDDEN ONSET OF SLEEP [None]
